FAERS Safety Report 10181500 (Version 2)
Quarter: 2014Q3

REPORT INFORMATION
  Report Type: Spontaneous
  Country: US (occurrence: US)
  Receive Date: 20140519
  Receipt Date: 20140801
  Transmission Date: 20150326
  Serious: Yes (Hospitalization)
  Sender: FDA-Public Use
  Company Number: US-GLAXOSMITHKLINE-A1073009A

PATIENT
  Age: 62 Year
  Sex: Male

DRUGS (15)
  1. LISINOPRIL. [Concomitant]
     Active Substance: LISINOPRIL
  2. CLONAZEPAM. [Concomitant]
     Active Substance: CLONAZEPAM
  3. PLAVIX [Concomitant]
     Active Substance: CLOPIDOGREL BISULFATE
  4. LOVAZA [Concomitant]
     Active Substance: OMEGA-3-ACID ETHYL ESTERS
  5. MIRAPEX [Concomitant]
     Active Substance: PRAMIPEXOLE DIHYDROCHLORIDE
  6. CYMBALTA [Concomitant]
     Active Substance: DULOXETINE HYDROCHLORIDE
  7. LYRICA [Concomitant]
     Active Substance: PREGABALIN
  8. PRAVASTATIN [Concomitant]
     Active Substance: PRAVASTATIN\PRAVASTATIN SODIUM
  9. CIALIS [Concomitant]
     Active Substance: TADALAFIL
  10. LOVAZA [Suspect]
     Active Substance: OMEGA-3-ACID ETHYL ESTERS
     Indication: STENT PLACEMENT
     Dosage: 2CAP TWICE PER DAY
     Route: 048
  11. METFORMIN [Concomitant]
     Active Substance: METFORMIN HYDROCHLORIDE
  12. NITROGLYCERIN. [Concomitant]
     Active Substance: NITROGLYCERIN
  13. DICLOFENAC [Concomitant]
     Active Substance: DICLOFENAC
  14. RANEXA [Concomitant]
     Active Substance: RANOLAZINE
  15. LEXAPRO [Concomitant]
     Active Substance: ESCITALOPRAM OXALATE

REACTIONS (8)
  - Syncope [Recovered/Resolved]
  - Diabetes mellitus [Not Recovered/Not Resolved]
  - Therapeutic response changed [Unknown]
  - Burning sensation [Not Recovered/Not Resolved]
  - Hypotension [Unknown]
  - Low density lipoprotein increased [Unknown]
  - Blood cholesterol increased [Unknown]
  - Blood triglycerides increased [Unknown]

NARRATIVE: CASE EVENT DATE: 2012
